FAERS Safety Report 6707963-X (Version None)
Quarter: 2010Q2

REPORT INFORMATION
  Report Type: 
  Country: None (occurrence: None)
  Receive Date: 20100503
  Receipt Date: 20100422
  Transmission Date: 20101027
  Serious: Yes (Hospitalization, Disabling)
  Sender: FDA-Public Use
  Company Number: FR-BAXTER-2010BH011251

PATIENT
  Age: 36 Year
  Sex: Male

DRUGS (12)
  1. HOLOXAN BAXTER [Suspect]
     Indication: B-CELL LYMPHOMA
     Route: 042
     Dates: start: 20070725, end: 20070808
  2. ENDOXAN BAXTER [Suspect]
     Indication: B-CELL LYMPHOMA
     Route: 042
     Dates: start: 20070417, end: 20070530
  3. MABTHERA [Suspect]
     Indication: B-CELL LYMPHOMA
     Route: 042
     Dates: start: 20070417, end: 20070808
  4. DOXORUBICIN HCL [Suspect]
     Indication: B-CELL LYMPHOMA
     Route: 042
     Dates: start: 20070417, end: 20070530
  5. BLEOMYCIN GENERIC [Suspect]
     Indication: B-CELL LYMPHOMA
     Route: 042
     Dates: start: 20070417, end: 20070530
  6. VINDESINE [Suspect]
     Indication: B-CELL LYMPHOMA
     Route: 042
     Dates: start: 20070417, end: 20070530
  7. METHOTREXATE [Suspect]
     Indication: B-CELL LYMPHOMA
     Route: 042
     Dates: start: 20070627, end: 20070711
  8. ETOPOSIDE [Suspect]
     Indication: B-CELL LYMPHOMA
     Route: 042
     Dates: start: 20070725, end: 20070808
  9. BICNU [Suspect]
     Indication: B-CELL LYMPHOMA
     Route: 042
     Dates: start: 20070829, end: 20070901
  10. CYTARABINE [Suspect]
     Indication: B-CELL LYMPHOMA
     Route: 042
     Dates: start: 20070829, end: 20070901
  11. ETOPOSIDE [Suspect]
     Route: 042
     Dates: start: 20070829, end: 20070901
  12. ALKERAN [Suspect]
     Indication: B-CELL LYMPHOMA
     Route: 042
     Dates: start: 20070829, end: 20070901

REACTIONS (1)
  - PULMONARY FIBROSIS [None]
